FAERS Safety Report 21111298 (Version 2)
Quarter: 2022Q3

REPORT INFORMATION
  Report Type: Spontaneous
  Country: US (occurrence: US)
  Receive Date: 20220721
  Receipt Date: 20220803
  Transmission Date: 20221027
  Serious: No
  Sender: FDA-Public Use
  Company Number: US-LEO Pharma-344156

PATIENT
  Sex: Female

DRUGS (3)
  1. Dexamethasone topical [Concomitant]
     Indication: Product used for unknown indication
     Route: 003
  2. PREDNISONE [Concomitant]
     Active Substance: PREDNISONE
     Indication: Product used for unknown indication
  3. ADBRY [Suspect]
     Active Substance: TRALOKINUMAB-LDRM
     Indication: Dermatitis atopic
     Dates: start: 20220706

REACTIONS (1)
  - Skin reaction [Not Recovered/Not Resolved]
